FAERS Safety Report 9961190 (Version 3)
Quarter: 2014Q2

REPORT INFORMATION
  Report Type: Spontaneous
  Country: US (occurrence: US)
  Receive Date: 20140305
  Receipt Date: 20140407
  Transmission Date: 20141212
  Serious: Yes (Death, Other)
  Sender: FDA-Public Use
  Company Number: US-ROCHE-1312949

PATIENT
  Age: 75 Year
  Sex: Female
  Weight: 46.76 kg

DRUGS (7)
  1. XELODA [Suspect]
     Indication: CHOLANGIOCARCINOMA
     Dosage: 2 TABS BY MOUTH, 14 DAYS ON, 7 DAYS OFF
     Route: 048
     Dates: start: 20131110
  2. XELODA [Suspect]
     Route: 048
     Dates: start: 20131110
  3. ZOFRAN [Concomitant]
  4. XARELTO [Concomitant]
  5. PERCOCET [Concomitant]
  6. ALPRAZOLAM [Concomitant]
     Route: 048
  7. ACECLOFENAC [Concomitant]

REACTIONS (5)
  - Malignant neoplasm progression [Fatal]
  - Vomiting [Recovering/Resolving]
  - Nausea [Recovering/Resolving]
  - Abdominal pain upper [Unknown]
  - Pain [Unknown]
